FAERS Safety Report 15284372 (Version 1)
Quarter: 2018Q3

REPORT INFORMATION
  Report Type: Spontaneous
  Country: US (occurrence: US)
  Receive Date: 20180801
  Receipt Date: 20180801
  Transmission Date: 20181010
  Serious: No
  Sender: FDA-Public Use
  Company Number: None

PATIENT
  Age: 70 Year
  Sex: Female

DRUGS (1)
  1. CAPECITABINE TAB 150MG [Concomitant]
     Active Substance: CAPECITABINE

REACTIONS (3)
  - Product size issue [None]
  - Product use complaint [None]
  - Therapy change [None]

NARRATIVE: CASE EVENT DATE: 20180801
